FAERS Safety Report 17451172 (Version 2)
Quarter: 2020Q1

REPORT INFORMATION
  Report Type: Spontaneous
  Country: US (occurrence: US)
  Receive Date: 20200224
  Receipt Date: 20200227
  Transmission Date: 20200409
  Serious: Yes (Death)
  Sender: FDA-Public Use
  Company Number: US-PFIZER INC-2020077164

PATIENT
  Age: 32 Year
  Sex: Female

DRUGS (4)
  1. GLUCAGON. [Suspect]
     Active Substance: GLUCAGON
     Indication: CARDIAC ARREST
     Dosage: UNK
  2. ATROPINE SULFATE. [Suspect]
     Active Substance: ATROPINE SULFATE
     Dosage: UNK
  3. SODIUM BICARBONATE. [Suspect]
     Active Substance: SODIUM BICARBONATE
     Indication: CARDIAC ARREST
     Dosage: TEN DOSES OF SODIUM BICARBONATE
  4. EPINEPHRINE. [Suspect]
     Active Substance: EPINEPHRINE
     Dosage: SIXTEEN DOSES OF EPINEPHRINE
     Route: 065

REACTIONS (1)
  - Drug ineffective [Fatal]
